FAERS Safety Report 8734783 (Version 2)
Quarter: 2013Q4

REPORT INFORMATION
  Report Type: Spontaneous
  Country: US (occurrence: US)
  Receive Date: 20120821
  Receipt Date: 20131101
  Transmission Date: 20140711
  Serious: No
  Sender: FDA-Public Use
  Company Number: US-009507513-1207USA001424

PATIENT
  Sex: 0

DRUGS (2)
  1. CLARITIN [Suspect]
     Indication: MEDICAL OBSERVATION
     Dosage: 20 MG, QD
     Route: 048
  2. CLARITIN [Suspect]
     Indication: PRODUCT USED FOR UNKNOWN INDICATION

REACTIONS (1)
  - Prescribed overdose [Unknown]
